FAERS Safety Report 4569539-2 (Version None)
Quarter: 2005Q1

REPORT INFORMATION
  Report Type: 
  Country: None (occurrence: None)
  Receive Date: 20050201
  Receipt Date: 20050119
  Transmission Date: 20050727
  Serious: Yes (Hospitalization)
  Sender: FDA-Public Use
  Company Number: 2005015932

PATIENT
  Age: 88 Year
  Sex: Male

DRUGS (12)
  1. AMLODIPINE [Suspect]
     Indication: ILL-DEFINED DISORDER
     Dosage: 5 MG (5 MG, DAILY), ORAL
     Route: 048
  2. SEVELAMER HYDROCHLORIDE (SEVELAMER HYDROCHLORIDE) [Suspect]
     Indication: ILL-DEFINED DISORDER
     Dosage: 1600 MG (800 MG, BID), ORAL
     Route: 048
  3. OMEPRAZOLE [Suspect]
     Indication: ILL-DEFINED DISORDER
     Dosage: 20 MG (20 MG, DAILY), ORAL
     Route: 048
     Dates: start: 20041012, end: 20041103
  4. ALLOPURINOL [Suspect]
     Indication: ILL-DEFINED DISORDER
     Dosage: 200 MG (200 MG, DAILY), ORAL
     Route: 048
     Dates: start: 20041102
  5. AMIODARONE HYDROCHLORIDE [Suspect]
     Indication: ILL-DEFINED DISORDER
     Dosage: 1 DF (200 MG, THREE TIMES A WEEK),  ORAL
     Route: 048
  6. COLCHICINE (COLCHICINE) [Suspect]
     Indication: ILL-DEFINED DISORDER
     Dosage: 1 MG (1 MG, DAILY), ORAL
     Route: 048
     Dates: start: 20041012, end: 20041101
  7. ALFACALCIDOL (ALFACALCIDOL) [Suspect]
     Indication: ILL-DEFINED DISORDER
     Dosage: 0.25 MCG (0.25 MCG, THREE TIMES A WEEK), ORAL
     Route: 048
  8. BISOPROLOL FUMARATE [Suspect]
     Indication: ILL-DEFINED DISORDER
     Dosage: 75 (25 IN THE MORNING), ORAL
     Route: 048
     Dates: end: 20041103
  9. CLOPIDOGREL BISULFATE [Suspect]
     Indication: ILL-DEFINED DISORDER
     Dosage: 75 MG (75 MG, DAILY), ORAL
     Route: 048
  10. FUROSEMIDE [Suspect]
     Indication: ILL-DEFINED DISORDER
     Dosage: 500 MG (500 MG, DAILY), ORAL
     Route: 048
  11. GLYCERYL TRINITRATE PATCH (GLYCERYL TRINITRATE) (GLYCERYL TRINITRATE) [Suspect]
     Indication: ILL-DEFINED DISORDER
     Dosage: 10 MG (10 MG, 1 PATCH/DAY)
  12. RUTIN TAB [Suspect]
     Indication: ILL-DEFINED DISORDER
     Dosage: 1 DF DAILY, ORAL
     Route: 048

REACTIONS (1)
  - IDIOPATHIC THROMBOCYTOPENIC PURPURA [None]
